FAERS Safety Report 6538282-2 (Version None)
Quarter: 2010Q1

REPORT INFORMATION
  Report Type: 
  Country: None (occurrence: None)
  Receive Date: 20100112
  Receipt Date: 20100112
  Transmission Date: 20100710
  Serious: Yes (Disabling, Other)
  Sender: FDA-Public Use
  Company Number: None

PATIENT
  Age: 21 Year
  Sex: Male
  Weight: 70.3075 kg

DRUGS (2)
  1. HALOPERIDOL 5MG [Suspect]
     Dosage: 88 2/DAY
     Dates: start: 20091214, end: 20100112
  2. BENZTROPINE 1MG [Suspect]
     Dosage: 44 1/DAY
     Dates: start: 20091214, end: 20100112

REACTIONS (2)
  - APHASIA [None]
  - MOVEMENT DISORDER [None]
